FAERS Safety Report 7977253-6 (Version None)
Quarter: 2011Q4

REPORT INFORMATION
  Report Type: 
  Country: None (occurrence: None)
  Receive Date: 20111213
  Receipt Date: 20111115
  Transmission Date: 20120403
  Serious: No
  Sender: FDA-Public Use
  Company Number: US-AMGEN-USASP2011060203

PATIENT
  Age: 58 Year
  Sex: Female

DRUGS (4)
  1. ENBREL [Suspect]
     Indication: PSORIASIS
  2. ENBREL [Suspect]
     Indication: PSORIATIC ARTHROPATHY
  3. ENBREL [Suspect]
     Indication: ANKYLOSING SPONDYLITIS
  4. ENBREL [Suspect]
     Indication: RHEUMATOID ARTHRITIS
     Dosage: 50 MG, QWK
     Dates: start: 20111024

REACTIONS (6)
  - DRY SKIN [None]
  - SKIN EXFOLIATION [None]
  - SKIN FISSURES [None]
  - DRUG INEFFECTIVE [None]
  - PSORIASIS [None]
  - SKIN HAEMORRHAGE [None]
